FAERS Safety Report 6982209-6 (Version None)
Quarter: 2010Q3

REPORT INFORMATION
  Report Type: 
  Country: None (occurrence: None)
  Receive Date: 20100914
  Receipt Date: 20091217
  Transmission Date: 20110219
  Serious: No
  Sender: FDA-Public Use
  Company Number: US-PFIZER INC-2009291289

PATIENT
  Sex: Female

DRUGS (12)
  1. LYRICA [Suspect]
     Indication: NEUROPATHY PERIPHERAL
     Dates: start: 20091023, end: 20091027
  2. QUINAPRIL [Concomitant]
     Indication: HYPERTENSION
     Dosage: UNK
  3. VERAPAMIL [Concomitant]
     Indication: CARDIAC DISORDER
     Dosage: UNK
  4. NIACIN [Concomitant]
     Indication: ANAEMIA
     Dosage: UNK
  5. GLYBURIDE [Concomitant]
     Dosage: UNK
  6. ACTOS [Concomitant]
     Dosage: UNK
  7. SYNTHROID [Concomitant]
     Dosage: UNK
  8. BIOTIN [Concomitant]
     Dosage: UNK
  9. DAILY VITAMINS [Concomitant]
     Dosage: UNK
  10. CALCIUM [Concomitant]
     Dosage: UNK
  11. IRON [Concomitant]
     Dosage: UNK
  12. FOLIC ACID [Concomitant]
     Dosage: UNK

REACTIONS (4)
  - DIZZINESS [None]
  - GAIT DISTURBANCE [None]
  - MALAISE [None]
  - NAUSEA [None]
